FAERS Safety Report 25655544 (Version 1)
Quarter: 2025Q3

REPORT INFORMATION
  Report Type: Spontaneous
  Country: BR (occurrence: BR)
  Receive Date: 20250807
  Receipt Date: 20250807
  Transmission Date: 20251020
  Serious: Yes (Other)
  Sender: PFIZER
  Company Number: BR-PFIZER INC-202500146282

PATIENT
  Age: 41 Year
  Sex: Male
  Weight: 101 kg

DRUGS (18)
  1. RUXIENCE [Suspect]
     Active Substance: RITUXIMAB-PVVR
     Indication: Non-Hodgkin^s lymphoma
     Dosage: 800 MG, 1X/DAY, FIRST INFUSION
     Route: 042
     Dates: start: 20250707, end: 20250707
  2. RUXIENCE [Suspect]
     Active Substance: RITUXIMAB-PVVR
     Dosage: 800 MG, 1X/DAY, FIRST INFUSION
     Route: 042
     Dates: start: 20250707, end: 20250707
  3. RUXIENCE [Suspect]
     Active Substance: RITUXIMAB-PVVR
     Dosage: 800 MG, 1X/DAY
     Route: 042
     Dates: start: 20250728, end: 20250728
  4. RUXIENCE [Suspect]
     Active Substance: RITUXIMAB-PVVR
     Dosage: 800 MG, 1X/DAY
     Route: 042
     Dates: start: 20250728, end: 20250728
  5. CYCLOPHOSPHAMIDE [Concomitant]
     Active Substance: CYCLOPHOSPHAMIDE
     Indication: Non-Hodgkin^s lymphoma
     Dosage: 1650 MG, 1X/DAY
     Route: 042
     Dates: start: 20250707, end: 20250707
  6. CYCLOPHOSPHAMIDE [Concomitant]
     Active Substance: CYCLOPHOSPHAMIDE
     Dosage: 1642.5 MG, 1X/DAY
     Route: 042
     Dates: start: 20250728, end: 20250728
  7. DEXAMETHASONE [Concomitant]
     Active Substance: DEXAMETHASONE
     Indication: Premedication
     Dosage: 20 MG, 1X/DAY
     Route: 042
     Dates: start: 20250707, end: 20250707
  8. DEXAMETHASONE [Concomitant]
     Active Substance: DEXAMETHASONE
     Dosage: 20 MG, 1X/DAY
     Route: 042
     Dates: start: 20250728, end: 20250728
  9. DIPHENHYDRAMINE [Concomitant]
     Active Substance: DIPHENHYDRAMINE
     Indication: Premedication
     Dosage: 50 MG, 1X/DAY
     Route: 042
     Dates: start: 20250707, end: 20250707
  10. DIPHENHYDRAMINE [Concomitant]
     Active Substance: DIPHENHYDRAMINE
     Dosage: 50 MG, 1X/DAY
     Route: 042
     Dates: start: 20250728, end: 20250728
  11. DOXORUBICIN [Concomitant]
     Active Substance: DOXORUBICIN
     Indication: Non-Hodgkin^s lymphoma
     Dosage: 110 MG, 1X/DAY
     Route: 042
     Dates: start: 20250707, end: 20250707
  12. DOXORUBICIN [Concomitant]
     Active Substance: DOXORUBICIN
     Dosage: 109.5 MG, 1X/DAY
     Route: 042
     Dates: start: 20250728, end: 20250728
  13. ONDANSETRON [Concomitant]
     Active Substance: ONDANSETRON
     Indication: Premedication
     Dosage: 8 MG, 1X/DAY
     Route: 042
     Dates: start: 20250707, end: 20250707
  14. ONDANSETRON [Concomitant]
     Active Substance: ONDANSETRON
     Dosage: 8 MG, 1X/DAY
     Route: 042
     Dates: start: 20250728, end: 20250728
  15. ACETAMINOPHEN [Concomitant]
     Active Substance: ACETAMINOPHEN
     Indication: Premedication
     Dosage: 750 MG, 1X/DAY
     Route: 048
     Dates: start: 20250707, end: 20250707
  16. ACETAMINOPHEN [Concomitant]
     Active Substance: ACETAMINOPHEN
     Dosage: 750 MG, 1X/DAY
     Route: 048
     Dates: start: 20250728, end: 20250728
  17. VINCRISTINE [Concomitant]
     Active Substance: VINCRISTINE
     Indication: Non-Hodgkin^s lymphoma
     Dosage: 2 MG, 1X/DAY
     Route: 042
     Dates: start: 20250707, end: 20250707
  18. VINCRISTINE [Concomitant]
     Active Substance: VINCRISTINE
     Dosage: 2 MG, 1X/DAY
     Route: 042
     Dates: start: 20250728, end: 20250728

REACTIONS (3)
  - Pruritus [Recovered/Resolved]
  - Hyperaemia [Recovered/Resolved]
  - Off label use [Unknown]

NARRATIVE: CASE EVENT DATE: 20250707
